FAERS Safety Report 12744086 (Version 1)
Quarter: 2016Q3

REPORT INFORMATION
  Report Type: Spontaneous
  Country: FR (occurrence: FR)
  Receive Date: 20160914
  Receipt Date: 20160914
  Transmission Date: 20161109
  Serious: Yes (Other)
  Sender: FDA-Public Use
  Company Number: FR-ALLERGAN-1668272US

PATIENT

DRUGS (1)
  1. OZURDEX [Suspect]
     Active Substance: DEXAMETHASONE
     Indication: MACULAR OEDEMA
     Dosage: 0.7 MG, SINGLE
     Route: 050

REACTIONS (5)
  - Cataract traumatic [Unknown]
  - Intraocular pressure increased [Unknown]
  - Posterior capsule rupture [Unknown]
  - Device use error [Unknown]
  - Complication of device insertion [Unknown]
